FAERS Safety Report 7692047-7 (Version None)
Quarter: 2011Q3

REPORT INFORMATION
  Report Type: 
  Country: None (occurrence: None)
  Receive Date: 20110818
  Receipt Date: 20110808
  Transmission Date: 20111222
  Serious: Yes (Hospitalization)
  Sender: FDA-Public Use
  Company Number: PHHY2011DK71403

PATIENT
  Sex: Female

DRUGS (1)
  1. CIPROFLOXACIN [Suspect]
     Indication: INFECTED BITES
     Dosage: 500 MG, BID
     Route: 048
     Dates: start: 20110701, end: 20110727

REACTIONS (8)
  - SYNCOPE [None]
  - FATIGUE [None]
  - HEADACHE [None]
  - DIZZINESS [None]
  - NAUSEA [None]
  - PHOTOPHOBIA [None]
  - ARTHRALGIA [None]
  - NECK PAIN [None]
